FAERS Safety Report 14602316 (Version 3)
Quarter: 2018Q2

REPORT INFORMATION
  Report Type: Report from Study
  Country: US (occurrence: US)
  Receive Date: 20180306
  Receipt Date: 20180612
  Transmission Date: 20180711
  Serious: Yes (Death, Hospitalization, Other)
  Sender: FDA-Public Use
  Company Number: US-TAKEDA-2017MPI009494

PATIENT
  Age: 58 Year
  Sex: Female

DRUGS (1)
  1. IXAZOMIB [Suspect]
     Active Substance: IXAZOMIB
     Indication: PLASMA CELL MYELOMA
     Dosage: 3 MG, UNK
     Route: 048
     Dates: start: 201701, end: 201709

REACTIONS (4)
  - Device related infection [Not Recovered/Not Resolved]
  - Renal failure [Not Recovered/Not Resolved]
  - Staphylococcal infection [Unknown]
  - Death [Fatal]

NARRATIVE: CASE EVENT DATE: 201802
